FAERS Safety Report 4722529-9 (Version None)
Quarter: 2005Q3

REPORT INFORMATION
  Report Type: 
  Country: None (occurrence: None)
  Receive Date: 20050720
  Receipt Date: 20050707
  Transmission Date: 20060218
  Serious: Yes (Death, Life-Threatening, Hospitalization)
  Sender: FDA-Public Use
  Company Number: 2005022660

PATIENT
  Age: 57 Year
  Sex: Male
  Weight: 60 kg

DRUGS (2)
  1. IRINOTECAN HCL [Suspect]
     Indication: SQUAMOUS CELL CARCINOMA
     Dosage: 50 MG/M*2 (CYCLIC) INTRAVENOUS
     Route: 042
     Dates: start: 20040920, end: 20040927
  2. CISPLATIN [Suspect]
     Indication: SQUAMOUS CELL CARCINOMA
     Dosage: 30 MG/M*2 (CYCLIC) INTRAVENOUS
     Route: 042
     Dates: start: 20040920, end: 20040927

REACTIONS (6)
  - DEHYDRATION [None]
  - DISEASE PROGRESSION [None]
  - GENERAL PHYSICAL HEALTH DETERIORATION [None]
  - HAEMOPTYSIS [None]
  - INTESTINAL FISTULA [None]
  - WEIGHT DECREASED [None]
